FAERS Safety Report 10556880 (Version 4)
Quarter: 2015Q1

REPORT INFORMATION
  Report Type: Report from Study
  Country: US (occurrence: US)
  Receive Date: 20141031
  Receipt Date: 20150127
  Transmission Date: 20150720
  Serious: No
  Sender: FDA-Public Use
  Company Number: US-VERTEX PHARMACEUTICALS-2014-004426

PATIENT
  Age: 6 Year
  Sex: Male

DRUGS (1)
  1. IVACAFTOR [Suspect]
     Active Substance: IVACAFTOR
     Indication: CYSTIC FIBROSIS
     Dosage: 150 MG, BID
     Route: 048
     Dates: start: 20140717

REACTIONS (3)
  - Malaise [Unknown]
  - Foot fracture [Not Recovered/Not Resolved]
  - Increased bronchial secretion [Unknown]

NARRATIVE: CASE EVENT DATE: 201410
